FAERS Safety Report 14816026 (Version 1)
Quarter: 2018Q2

REPORT INFORMATION
  Report Type: Report from Study
  Country: US (occurrence: US)
  Receive Date: 20180426
  Receipt Date: 20180426
  Transmission Date: 20180711
  Serious: No
  Sender: FDA-Public Use
  Company Number: US-AMGEN-USASL2018034081

PATIENT
  Age: 74 Year
  Sex: Female
  Weight: 75.74 kg

DRUGS (3)
  1. PRALUENT [Concomitant]
     Active Substance: ALIROCUMAB
     Indication: HYPERLIPIDAEMIA
     Dosage: 150 MG, Q2WK
     Dates: start: 20160108, end: 20160524
  2. REPATHA [Suspect]
     Active Substance: EVOLOCUMAB
     Indication: DYSLIPIDAEMIA
     Dosage: 140 MG/ML, QMO
     Route: 058
  3. REPATHA [Suspect]
     Active Substance: EVOLOCUMAB
     Indication: HYPERCHOLESTEROLAEMIA
     Dosage: 140 MG, Q2WK
     Route: 058
     Dates: start: 20180309

REACTIONS (4)
  - Injection site pruritus [Recovering/Resolving]
  - Off label use [Unknown]
  - Injection site irritation [Recovering/Resolving]
  - Injection site erythema [Recovering/Resolving]
